FAERS Safety Report 20574438 (Version 1)
Quarter: 2022Q1

REPORT INFORMATION
  Report Type: Spontaneous
  Country: AU (occurrence: AU)
  Receive Date: 20220309
  Receipt Date: 20220309
  Transmission Date: 20220423
  Serious: Yes (Hospitalization)
  Sender: FDA-Public Use
  Company Number: AU-TASMAN PHARMA, INC.-2022TSM00035

PATIENT
  Age: 26 Year
  Sex: Female
  Weight: 79 kg

DRUGS (18)
  1. CLOZAPINE [Suspect]
     Active Substance: CLOZAPINE
     Indication: Schizophrenia
     Dosage: 300 MG
     Dates: start: 20210304, end: 20210729
  2. CLOZAPINE [Suspect]
     Active Substance: CLOZAPINE
     Indication: Schizophrenia
     Dosage: 300 MG
     Dates: start: 20210730, end: 20210812
  3. CLOZAPINE [Suspect]
     Active Substance: CLOZAPINE
     Dosage: 300 MG
     Dates: start: 20210922, end: 20211017
  4. CLOZAPINE [Suspect]
     Active Substance: CLOZAPINE
     Dosage: 300 MG
     Dates: start: 20211116, end: 20211212
  5. CLOZAPINE [Suspect]
     Active Substance: CLOZAPINE
     Dosage: 350 MG, 1X/DAY NOCTE
     Dates: start: 20220120
  6. CLOZAPINE [Suspect]
     Active Substance: CLOZAPINE
     Indication: Schizophrenia
     Dosage: 300 MG
     Dates: start: 20210813, end: 20210921
  7. CLOZAPINE [Suspect]
     Active Substance: CLOZAPINE
     Dosage: 300 MG
     Dates: start: 20211018, end: 20211115
  8. CLOZAPINE [Suspect]
     Active Substance: CLOZAPINE
     Dosage: 300 MG
     Dates: start: 20211213, end: 20220119
  9. PAROXETINE [Concomitant]
     Active Substance: PAROXETINE
     Dosage: 60 MG, 1X/DAY MANE
  10. PRAZOSIN [Concomitant]
     Active Substance: PRAZOSIN
     Dosage: 2 MG, 1X/DAY NOCTE
  11. MELATONIN CR [Concomitant]
     Dosage: 2 MG, 1X/DAY NOCTE
  12. PANTOPRAZOLE [Concomitant]
     Active Substance: PANTOPRAZOLE
     Dosage: 40 MG, 1X/DAY MANE
  13. TOPAMAX [Concomitant]
     Active Substance: TOPIRAMATE
     Dosage: 100 MG, 2X/DAY
  14. DIAZEPAM [Concomitant]
     Active Substance: DIAZEPAM
     Dosage: 10 MG, 1X/DAY ARVO
  15. DIAZEPAM [Concomitant]
     Active Substance: DIAZEPAM
     Dosage: 5 MG, 3X/DAY AS NEEDED
  16. PERIACTIN [Concomitant]
     Active Substance: CYPROHEPTADINE HYDROCHLORIDE
     Dosage: 8 MG, 1X/DAY NOCTE
  17. OLANZAPINE [Concomitant]
     Active Substance: OLANZAPINE
     Dosage: 5 MG, 2X/DAY AS NEEDED
  18. ^SEROTIDE^ (SERETIDE) [Concomitant]
     Dosage: 2 PUFFS, 2X/DAY

REACTIONS (11)
  - Hospitalisation [Unknown]
  - Asthma [Not Recovered/Not Resolved]
  - Blood alkaline phosphatase increased [Recovering/Resolving]
  - Alanine aminotransferase increased [Recovered/Resolved]
  - Holotranscobalamin decreased [Unknown]
  - Vitamin B12 decreased [Unknown]
  - Blood folate decreased [Unknown]
  - Blood albumin increased [Unknown]
  - Tachycardia [Not Recovered/Not Resolved]
  - Electrocardiogram T wave abnormal [Unknown]
  - Weight decreased [Unknown]

NARRATIVE: CASE EVENT DATE: 20210101
